FAERS Safety Report 8950547 (Version 1)
Quarter: 2012Q4

REPORT INFORMATION
  Report Type: Spontaneous
  Country: US (occurrence: None)
  Receive Date: 20121204
  Receipt Date: 20121204
  Transmission Date: 20130627
  Serious: Yes (Life-Threatening, Hospitalization)
  Sender: FDA-Public Use
  Company Number: None

PATIENT
  Age: 50 Year
  Sex: Male
  Weight: 151.8 kg

DRUGS (1)
  1. GABAPENTIN [Suspect]
     Indication: PAIN
     Route: 048
     Dates: start: 20120404, end: 20120710

REACTIONS (2)
  - Hallucination, auditory [None]
  - Homicidal ideation [None]
